FAERS Safety Report 4837509-2 (Version None)
Quarter: 2005Q4

REPORT INFORMATION
  Report Type: 
  Country: None (occurrence: None)
  Receive Date: 20051128
  Receipt Date: 20051122
  Transmission Date: 20060501
  Serious: Yes (Life-Threatening)
  Sender: FDA-Public Use
  Company Number: FR-GLAXOSMITHKLINE-B0401341A

PATIENT
  Age: 33 Year
  Sex: Female

DRUGS (1)
  1. AMOXICILLIN TRIHYDRATE [Suspect]
     Indication: DENTAL DISORDER PROPHYLAXIS
     Dosage: 500MG SINGLE DOSE
     Route: 048
     Dates: start: 20020501, end: 20020501

REACTIONS (5)
  - ANAPHYLACTIC SHOCK [None]
  - BLOOD PRESSURE SYSTOLIC ABNORMAL [None]
  - MALAISE [None]
  - PRURITUS [None]
  - URTICARIA [None]
